FAERS Safety Report 9640144 (Version 6)
Quarter: 2013Q4

REPORT INFORMATION
  Report Type: Spontaneous
  Country: US (occurrence: US)
  Receive Date: 20131023
  Receipt Date: 20131226
  Transmission Date: 20140711
  Serious: No
  Sender: FDA-Public Use
  Company Number: US-PFIZER INC-2013300310

PATIENT
  Sex: Female

DRUGS (10)
  1. CELEBREX [Suspect]
     Indication: PAIN IN EXTREMITY
     Dosage: 1 PILL, AT NIGHT (DAILY)
     Dates: start: 20130523, end: 2013
  2. CELEBREX [Suspect]
     Indication: ARTHRITIS
  3. CELEBREX [Suspect]
     Indication: OSTEOARTHRITIS
  4. DICLOFENAC EPOLAMINE [Suspect]
     Indication: PAIN IN EXTREMITY
     Dosage: 50 MG, 2X/DAY
     Dates: start: 2013
  5. DICLOFENAC EPOLAMINE [Suspect]
     Indication: DYSSTASIA
  6. NEURONTIN [Suspect]
     Indication: PAIN IN EXTREMITY
     Dosage: 100 MG, 1X/DAY
     Dates: start: 20130617, end: 2013
  7. NEURONTIN [Suspect]
     Indication: DYSSTASIA
  8. ALEVE [Suspect]
     Indication: PAIN IN EXTREMITY
     Dosage: 220 MG, 2X/DAY
     Dates: start: 2013, end: 2013
  9. ALEVE [Suspect]
     Indication: DYSSTASIA
  10. LEVOTHYROXINE SODIUM [Concomitant]
     Indication: THYROID DISORDER
     Dosage: 50 UG, DAILY

REACTIONS (3)
  - Pain in extremity [Not Recovered/Not Resolved]
  - Dysstasia [Not Recovered/Not Resolved]
  - Drug ineffective [Unknown]
